FAERS Safety Report 4912590-0 (Version None)
Quarter: 2006Q1

REPORT INFORMATION
  Report Type: 
  Country: None (occurrence: None)
  Receive Date: 20060215
  Receipt Date: 20060210
  Transmission Date: 20060701
  Serious: Yes (Other)
  Sender: FDA-Public Use
  Company Number: CA-GLAXOSMITHKLINE-A0593538A

PATIENT
  Age: 44 Year
  Sex: Female
  Weight: 51.8 kg

DRUGS (1)
  1. ZYBAN [Suspect]
     Indication: SMOKING CESSATION THERAPY
     Dosage: 150MG PER DAY
     Route: 048
     Dates: start: 20060120

REACTIONS (3)
  - AGGRESSION [None]
  - FATIGUE [None]
  - HEADACHE [None]
